FAERS Safety Report 9407313 (Version 1)
Quarter: 2013Q3

REPORT INFORMATION
  Report Type: Spontaneous
  Country: GB (occurrence: GB)
  Receive Date: 20130718
  Receipt Date: 20130718
  Transmission Date: 20140515
  Serious: Yes (Other)
  Sender: FDA-Public Use
  Company Number: GB-PFIZER INC-2013205892

PATIENT
  Age: 74 Year
  Sex: Male
  Weight: 110.5 kg

DRUGS (1)
  1. AMLODIPINE BESILATE [Suspect]
     Dosage: UNK
     Dates: start: 20130701

REACTIONS (2)
  - Dizziness [Unknown]
  - Chest pain [Unknown]
